APPROVED DRUG PRODUCT: ALCAFTADINE
Active Ingredient: ALCAFTADINE
Strength: 0.25%
Dosage Form/Route: SOLUTION/DROPS;OPHTHALMIC
Application: A209706 | Product #001
Applicant: GLAND PHARMA LTD
Approved: Mar 1, 2024 | RLD: No | RS: No | Type: OTC